FAERS Safety Report 7428069-0 (Version None)
Quarter: 2011Q2

REPORT INFORMATION
  Report Type: 
  Country: None (occurrence: None)
  Receive Date: 20110421
  Receipt Date: 20110413
  Transmission Date: 20111010
  Serious: Yes (Hospitalization)
  Sender: FDA-Public Use
  Company Number: 189807

PATIENT
  Age: 56 Year
  Sex: Female
  Weight: 42 kg

DRUGS (8)
  1. AVONEX [Suspect]
     Indication: MULTIPLE SCLEROSIS
     Route: 030
     Dates: start: 19961111, end: 19980101
  2. DANTRIUM [Concomitant]
     Indication: MUSCLE SPASMS
  3. PREMPRO [Concomitant]
     Indication: PRODUCT USED FOR UNKNOWN INDICATION
  4. PREDNISONE [Concomitant]
     Indication: PRODUCT USED FOR UNKNOWN INDICATION
  5. AVONEX [Suspect]
     Route: 030
     Dates: start: 20031001
  6. AVONEX [Suspect]
     Route: 030
     Dates: start: 20000101, end: 20031001
  7. MEDICATION FOR MUSCLE SPASMS (NOS) [Concomitant]
     Indication: MUSCLE SPASMS
  8. VITAMINS (NOS) [Concomitant]
     Indication: VITAMIN SUPPLEMENTATION

REACTIONS (3)
  - CAROTID ARTERY ANEURYSM [None]
  - BREAST OPERATION [None]
  - URINARY TRACT INFECTION [None]
